FAERS Safety Report 14067497 (Version 1)
Quarter: 2017Q4

REPORT INFORMATION
  Report Type: Other
  Country: CA (occurrence: CA)
  Receive Date: 20171010
  Receipt Date: 20171010
  Transmission Date: 20180321
  Serious: Yes (Hospitalization, Other)
  Sender: FDA-Public Use
  Company Number: CA-APOTEX-2017AP019303

PATIENT
  Age: 47 Year
  Sex: Female

DRUGS (3)
  1. APO-SALVENT [Suspect]
     Active Substance: ALBUTEROL
     Indication: ASTHMA
     Route: 065
  2. ADVAIR HFA [Suspect]
     Active Substance: FLUTICASONE PROPIONATE\SALMETEROL XINAFOATE
     Indication: ASTHMA
     Route: 065
  3. NUCALA [Suspect]
     Active Substance: MEPOLIZUMAB
     Indication: ASTHMA
     Dosage: 100 MG, UNK
     Route: 058

REACTIONS (11)
  - Back pain [Unknown]
  - Dyspnoea [Unknown]
  - Infection [Unknown]
  - Pneumonia [Unknown]
  - Aphonia [Unknown]
  - Condition aggravated [Unknown]
  - Wheezing [Unknown]
  - Contusion [Unknown]
  - Cough [Unknown]
  - Dysphonia [Unknown]
  - Haematemesis [Unknown]
